FAERS Safety Report 17024535 (Version 1)
Quarter: 2019Q4

REPORT INFORMATION
  Report Type: Spontaneous
  Country: GB (occurrence: GB)
  Receive Date: 20191113
  Receipt Date: 20191113
  Transmission Date: 20200122
  Serious: Yes (Hospitalization)
  Sender: FDA-Public Use
  Company Number: GB-ABBVIE-19K-167-2993210-00

PATIENT
  Age: 52 Year
  Sex: Female

DRUGS (3)
  1. LEVOBUPIVACAINE [Suspect]
     Active Substance: LEVOBUPIVACAINE
     Indication: CATARACT
     Route: 032
  2. HYALURONIDASE [Suspect]
     Active Substance: HYALURONIDASE
     Indication: CATARACT
     Route: 031
  3. LIGNOCAINE [Suspect]
     Active Substance: LIDOCAINE HYDROCHLORIDE
     Indication: CATARACT
     Route: 031

REACTIONS (3)
  - Anaesthesia [Recovered/Resolved]
  - Hypertension [Recovered/Resolved]
  - Supraventricular tachycardia [Recovered/Resolved]
